FAERS Safety Report 16358469 (Version 1)
Quarter: 2019Q2

REPORT INFORMATION
  Report Type: Spontaneous
  Country: DE (occurrence: DE)
  Receive Date: 20190527
  Receipt Date: 20190527
  Transmission Date: 20190711
  Serious: Yes (Hospitalization)
  Sender: FDA-Public Use
  Company Number: DE-AMGEN-DEUSP2019084022

PATIENT
  Age: 29 Year
  Sex: Female

DRUGS (3)
  1. METAMIZOLE [Suspect]
     Active Substance: METAMIZOLE
     Indication: MIGRAINE
     Dosage: UNK
     Route: 065
  2. AIMOVIG [Suspect]
     Active Substance: ERENUMAB-AOOE
     Indication: PRODUCT USED FOR UNKNOWN INDICATION
     Dosage: 70 MILLIGRAM
     Route: 065
     Dates: start: 201812
  3. IBUPROFEN. [Concomitant]
     Active Substance: IBUPROFEN
     Indication: MIGRAINE
     Dosage: UNK
     Route: 065

REACTIONS (3)
  - Aphonia [Unknown]
  - Agranulocytosis [Unknown]
  - Pyrexia [Unknown]
